FAERS Safety Report 10204815 (Version 1)
Quarter: 2014Q2

REPORT INFORMATION
  Report Type: Spontaneous
  Country: US (occurrence: None)
  Receive Date: 20140527
  Receipt Date: 20140527
  Transmission Date: 20141212
  Serious: Yes (Disabling)
  Sender: FDA-Public Use
  Company Number: None

PATIENT
  Age: 71 Year
  Sex: Female
  Weight: 65.77 kg

DRUGS (1)
  1. RESCULA [Suspect]
     Indication: GLAUCOMA
     Dosage: 1 DROP IN EACH EYE TWICE DAILY INTO THE EYE.

REACTIONS (5)
  - Pain [None]
  - Arthralgia [None]
  - Myalgia [None]
  - Back pain [None]
  - Arthritis [None]
